FAERS Safety Report 9234974 (Version 1)
Quarter: 2013Q2

REPORT INFORMATION
  Report Type: Spontaneous
  Country: US (occurrence: US)
  Receive Date: 20130416
  Receipt Date: 20130416
  Transmission Date: 20140414
  Serious: Yes (Hospitalization, Other)
  Sender: FDA-Public Use
  Company Number: US-ELI_LILLY_AND_COMPANY-US201304003447

PATIENT
  Age: 75 Year
  Sex: Female
  Weight: 86.17 kg

DRUGS (2)
  1. HUMALOG LISPRO [Suspect]
     Dosage: UNK
     Route: 058
  2. HUMALOG LISPRO [Suspect]
     Dosage: 10 U, TID

REACTIONS (1)
  - Blood glucose increased [Recovered/Resolved]
